FAERS Safety Report 24714904 (Version 2)
Quarter: 2025Q2

REPORT INFORMATION
  Report Type: Spontaneous
  Country: JP (occurrence: JP)
  Receive Date: 20241210
  Receipt Date: 20250502
  Transmission Date: 20250717
  Serious: Yes (Hospitalization)
  Sender: GENMAB
  Company Number: JP-GENMAB-2024-03760

PATIENT
  Age: 79 Year
  Sex: Male

DRUGS (8)
  1. EPKINLY [Suspect]
     Active Substance: EPCORITAMAB-BYSP
     Indication: Diffuse large B-cell lymphoma refractory
     Route: 058
     Dates: start: 2024, end: 2024
  2. EPKINLY [Suspect]
     Active Substance: EPCORITAMAB-BYSP
     Route: 058
     Dates: start: 2024, end: 2024
  3. EPKINLY [Suspect]
     Active Substance: EPCORITAMAB-BYSP
     Route: 058
     Dates: start: 2024
  4. DEXAMETHASONE [Concomitant]
     Active Substance: DEXAMETHASONE
     Indication: Premedication
     Dates: start: 2024, end: 2024
  5. DEXAMETHASONE [Concomitant]
     Active Substance: DEXAMETHASONE
     Dates: start: 2024, end: 2024
  6. PREDNISOLONE [Concomitant]
     Active Substance: PREDNISOLONE
     Indication: Premedication
     Dates: start: 2024, end: 2024
  7. PREDNISOLONE [Concomitant]
     Active Substance: PREDNISOLONE
     Dates: start: 2024, end: 2024
  8. PREDNISOLONE [Concomitant]
     Active Substance: PREDNISOLONE
     Dates: start: 2024, end: 2024

REACTIONS (2)
  - Malaise [Recovering/Resolving]
  - C-reactive protein increased [Recovering/Resolving]

NARRATIVE: CASE EVENT DATE: 20240101
